FAERS Safety Report 4565471-9 (Version None)
Quarter: 2005Q1

REPORT INFORMATION
  Report Type: 
  Country: None (occurrence: None)
  Receive Date: 20050125
  Receipt Date: 20050125
  Transmission Date: 20050727
  Serious: Yes (Hospitalization)
  Sender: FDA-Public Use
  Company Number: None

PATIENT
  Age: 75 Year
  Sex: Male
  Weight: 86.3 kg

DRUGS (2)
  1. ENOXAPARIN SODIUM [Suspect]
     Indication: THROMBOSIS PROPHYLAXIS
     Dosage: 40MG  NIGHTLY  SUBCUTANEO
     Route: 058
  2. CLOPIDOGREL [Suspect]
     Indication: ATRIAL FIBRILLATION
     Dosage: 75MG   DAILY   ORAL
     Route: 048

REACTIONS (2)
  - CEREBRAL HAEMORRHAGE [None]
  - HAEMORRHAGIC STROKE [None]
